FAERS Safety Report 12450455 (Version 1)
Quarter: 2016Q2

REPORT INFORMATION
  Report Type: Spontaneous
  Country: IT (occurrence: IT)
  Receive Date: 20160609
  Receipt Date: 20160609
  Transmission Date: 20160815
  Serious: Yes (Hospitalization)
  Sender: FDA-Public Use
  Company Number: IT-BAYER-2016-112556

PATIENT
  Age: 86 Year
  Sex: Male

DRUGS (8)
  1. CARDIOASPIRIN [Suspect]
     Active Substance: ASPIRIN
     Indication: THROMBOSIS PROPHYLAXIS
     Dosage: DAILY DOSE 100 MG
     Route: 048
     Dates: start: 20160101, end: 20160428
  2. LOBIVON [Concomitant]
     Active Substance: NEBIVOLOL HYDROCHLORIDE
     Route: 048
  3. DAPROX [Concomitant]
     Route: 048
  4. LANSOX [Concomitant]
     Active Substance: LANSOPRAZOLE
     Route: 048
  5. TRITTICO [Concomitant]
     Active Substance: TRAZODONE HYDROCHLORIDE
     Route: 048
  6. ALLOPURINOL. [Concomitant]
     Active Substance: ALLOPURINOL
     Route: 048
  7. LASIX [Concomitant]
     Active Substance: FUROSEMIDE
     Route: 048
  8. TRIATEC [Concomitant]
     Active Substance: RAMIPRIL
     Route: 048

REACTIONS (4)
  - Gastrointestinal haemorrhage [Unknown]
  - Thrombocytopenia [Unknown]
  - Acute myocardial infarction [Unknown]
  - Anaemia [Unknown]

NARRATIVE: CASE EVENT DATE: 20160428
